FAERS Safety Report 14456008 (Version 2)
Quarter: 2018Q1

REPORT INFORMATION
  Report Type: Report from Study
  Country: None (occurrence: US)
  Receive Date: 20180130
  Receipt Date: 20180309
  Transmission Date: 20180509
  Serious: Yes (Other)
  Sender: FDA-Public Use
  Company Number: US-ABBVIE-17K-163-2126129-00

PATIENT
  Age: 17 Year
  Sex: Male

DRUGS (5)
  1. HUMIRA [Suspect]
     Active Substance: ADALIMUMAB
     Dosage: DAY 1
     Route: 058
     Dates: start: 20171120, end: 20171120
  2. HUMIRA [Suspect]
     Active Substance: ADALIMUMAB
     Dosage: DAY 15
     Route: 058
     Dates: start: 20171205, end: 20171205
  3. HUMIRA [Suspect]
     Active Substance: ADALIMUMAB
     Dosage: DAY 29
     Route: 058
     Dates: start: 20171219, end: 20180115
  4. HUMIRA [Suspect]
     Active Substance: ADALIMUMAB
     Route: 058
     Dates: start: 20180122
  5. HUMIRA [Suspect]
     Active Substance: ADALIMUMAB
     Indication: CROHN^S DISEASE
     Route: 058

REACTIONS (19)
  - Depression [Unknown]
  - Viral infection [Recovered/Resolved]
  - Arthralgia [Recovered/Resolved]
  - Fatigue [Recovering/Resolving]
  - Vomiting [Recovered/Resolved]
  - Abdominal pain upper [Recovered/Resolved]
  - Anxiety [Unknown]
  - Fungal skin infection [Not Recovered/Not Resolved]
  - Diarrhoea [Recovering/Resolving]
  - Iron deficiency [Unknown]
  - Nasopharyngitis [Recovering/Resolving]
  - Diarrhoea [Recovered/Resolved]
  - Influenza [Unknown]
  - Anxiety [Recovered/Resolved]
  - Depressed mood [Not Recovered/Not Resolved]
  - Abdominal pain upper [Recovering/Resolving]
  - Drug level decreased [Unknown]
  - Hunger [Unknown]
  - Decreased appetite [Not Recovered/Not Resolved]

NARRATIVE: CASE EVENT DATE: 201710
